FAERS Safety Report 8422324-3 (Version None)
Quarter: 2012Q2

REPORT INFORMATION
  Report Type: 
  Country: None (occurrence: None)
  Receive Date: 20120601
  Receipt Date: 20120522
  Transmission Date: 20120825
  Serious: Yes (Hospitalization)
  Sender: FDA-Public Use
  Company Number: 2011SP048891

PATIENT
  Age: 10 Year
  Sex: Male

DRUGS (5)
  1. TEMODAL [Suspect]
     Indication: NEUROBLASTOMA
     Dosage: PO
     Route: 048
  2. IFOSFAMIDE [Suspect]
     Indication: NEUROBLASTOMA
  3. ETOPOSIDE [Suspect]
     Indication: NEUROBLASTOMA
  4. IRINOTECAN HCL [Suspect]
     Indication: NEUROBLASTOMA
  5. VINCRISTINE [Suspect]
     Indication: NEUROBLASTOMA

REACTIONS (4)
  - NEOPLASM PROGRESSION [None]
  - PANCREATIC PSEUDOCYST [None]
  - PANCREATITIS ACUTE [None]
  - NEUROBLASTOMA [None]
